FAERS Safety Report 15366799 (Version 1)
Quarter: 2018Q3

REPORT INFORMATION
  Report Type: Spontaneous
  Country: US (occurrence: US)
  Receive Date: 20180902
  Receipt Date: 20180902
  Transmission Date: 20181010
  Serious: Yes (Other)
  Sender: FDA-Public Use
  Company Number: None

PATIENT
  Age: 57 Year
  Sex: Female
  Weight: 75.15 kg

DRUGS (8)
  1. OXYCODONE/ACETAMINOPHEN 7.5/325 [Suspect]
     Active Substance: ACETAMINOPHEN\OXYCODONE HYDROCHLORIDE
     Indication: ARTHRITIS
     Dosage: ?          OTHER STRENGTH:7.5/325;QUANTITY:1 DF DOSAGE FORM;?
     Route: 048
     Dates: start: 20180822
  2. OXYCODONE/ACETAMINOPHEN 7.5/325 [Suspect]
     Active Substance: ACETAMINOPHEN\OXYCODONE HYDROCHLORIDE
     Indication: ARTHRALGIA
     Dosage: ?          OTHER STRENGTH:7.5/325;QUANTITY:1 DF DOSAGE FORM;?
     Route: 048
     Dates: start: 20180822
  3. OXYCODONE/ACETAMINOPHEN 7.5/325 [Suspect]
     Active Substance: ACETAMINOPHEN\OXYCODONE HYDROCHLORIDE
     Indication: BACK PAIN
     Dosage: ?          OTHER STRENGTH:7.5/325;QUANTITY:1 DF DOSAGE FORM;?
     Route: 048
     Dates: start: 20180822
  4. SYNTHROID [Concomitant]
     Active Substance: LEVOTHYROXINE SODIUM
  5. BENAZEPRIL [Concomitant]
     Active Substance: BENAZEPRIL HYDROCHLORIDE
  6. OXYCODONE/ACETAMINOPHEN 7.5/325 [Suspect]
     Active Substance: ACETAMINOPHEN\OXYCODONE HYDROCHLORIDE
     Indication: NERVE INJURY
     Dosage: ?          OTHER STRENGTH:7.5/325;QUANTITY:1 DF DOSAGE FORM;?
     Route: 048
     Dates: start: 20180822
  7. OXYCODONE [Concomitant]
     Active Substance: OXYCODONE
  8. ADVIL [Concomitant]
     Active Substance: IBUPROFEN

REACTIONS (7)
  - Disturbance in attention [None]
  - Drug effect decreased [None]
  - Product substitution issue [None]
  - Asthenia [None]
  - Dizziness [None]
  - Feeling abnormal [None]
  - Nausea [None]

NARRATIVE: CASE EVENT DATE: 20180824
